FAERS Safety Report 21519172 (Version 1)
Quarter: 2022Q4

REPORT INFORMATION
  Report Type: Spontaneous
  Country: US (occurrence: US)
  Receive Date: 20221028
  Receipt Date: 20221028
  Transmission Date: 20230112
  Serious: Yes (Other)
  Sender: FDA-Public Use
  Company Number: US-BAYER-2022A147948

PATIENT
  Age: 69 Year
  Sex: Female

DRUGS (1)
  1. CORICIDIN HBP CHEST CONGESTION AND COUGH [Suspect]
     Active Substance: DEXTROMETHORPHAN HYDROBROMIDE\GUAIFENESIN
     Dosage: 2 CAPSULES IN EVERY 4 HOURS
     Route: 048
     Dates: start: 20221017, end: 20221021

REACTIONS (2)
  - Foreign body in throat [Recovered/Resolved]
  - Off label use [Unknown]
